FAERS Safety Report 13504683 (Version 1)
Quarter: 2017Q2

REPORT INFORMATION
  Report Type: Report from Study
  Country: US (occurrence: US)
  Receive Date: 20170502
  Receipt Date: 20170502
  Transmission Date: 20170830
  Serious: Yes (Other)
  Sender: FDA-Public Use
  Company Number: PHHO2017US007002

PATIENT

DRUGS (16)
  1. ANTITHYMOCYTE IMMUNOGLOBULIN [Suspect]
     Active Substance: THYMOCYTE IMMUNE GLOBULIN NOS
     Indication: APLASTIC ANAEMIA
     Dosage: 3860 MG, QD (FOR 4 DAYS)
     Route: 042
     Dates: start: 20170110, end: 20170113
  2. PANTOPRAZOLE [Concomitant]
     Active Substance: PANTOPRAZOLE
     Indication: PROPHYLAXIS
     Dosage: 40 MG, QD
     Route: 048
     Dates: start: 20170110
  3. PREDNISONE. [Concomitant]
     Active Substance: PREDNISONE
     Dosage: 20 MG, BID
     Route: 048
     Dates: start: 20170130
  4. ELTROMBOPAG [Suspect]
     Active Substance: ELTROMBOPAG
     Indication: APLASTIC ANAEMIA
     Dosage: 150 MG, QD
     Route: 048
     Dates: start: 20170110, end: 20170419
  5. CYCLOSPORIN [Suspect]
     Active Substance: CYCLOSPORINE
     Dosage: 225 MG, BID (TOTAL DAILY DOSE 450MG)
     Route: 048
     Dates: start: 20170203, end: 20170206
  6. LEUPROLIDE ACETATE. [Concomitant]
     Active Substance: LEUPROLIDE ACETATE
     Indication: UTERINE LEIOMYOMA
  7. CYCLOSPORIN [Suspect]
     Active Substance: CYCLOSPORINE
     Dosage: 300 MG, UNK
     Route: 048
     Dates: start: 20170202, end: 20170202
  8. METHYLPREDNISOLONE. [Concomitant]
     Active Substance: METHYLPREDNISOLONE
     Indication: IMMUNOSUPPRESSION
     Dosage: 80 MG, QD
     Route: 041
     Dates: start: 20170110, end: 20170117
  9. ACETAMINOPHEN. [Concomitant]
     Active Substance: ACETAMINOPHEN
     Indication: PRODUCT USED FOR UNKNOWN INDICATION
     Dosage: 650 MG, Q6H
     Route: 048
     Dates: start: 20170109
  10. DIPHENHYDRAMINE HCL [Concomitant]
     Active Substance: DIPHENHYDRAMINE HYDROCHLORIDE
     Indication: PRODUCT USED FOR UNKNOWN INDICATION
     Dosage: 25 MG, Q6H
     Route: 048
     Dates: start: 20170109
  11. LEUPROLIDE ACETATE. [Concomitant]
     Active Substance: LEUPROLIDE ACETATE
     Indication: MENORRHAGIA
     Dosage: 3.75 MG, (MONTHLY)
     Route: 058
  12. PREDNISONE. [Concomitant]
     Active Substance: PREDNISONE
     Dosage: 25 MG, QD
     Route: 048
     Dates: start: 20170120, end: 20170129
  13. CYCLOSPORIN [Suspect]
     Active Substance: CYCLOSPORINE
     Dosage: 200 MG, BID (TOTAL DAILY DOSE 400MG)
     Route: 048
     Dates: start: 20170208
  14. CYCLOSPORIN [Suspect]
     Active Substance: CYCLOSPORINE
     Indication: APLASTIC ANAEMIA
     Dosage: 300 MG, BID (TOTAL DOSE 600MG)
     Route: 048
     Dates: start: 20170110, end: 20170201
  15. CYCLOSPORIN [Suspect]
     Active Substance: CYCLOSPORINE
     Dosage: 225 MG, UNK
     Route: 048
     Dates: start: 20170207, end: 20170207
  16. PREDNISONE. [Concomitant]
     Active Substance: PREDNISONE
     Indication: IMMUNOSUPPRESSION
     Dosage: 125 MG, QD
     Route: 048
     Dates: start: 20170118, end: 20170119

REACTIONS (1)
  - Cytogenetic abnormality [Unknown]

NARRATIVE: CASE EVENT DATE: 20170411
